FAERS Safety Report 8908202 (Version 1)
Quarter: 2012Q4

REPORT INFORMATION
  Report Type: 
  Country: US (occurrence: US)
  Receive Date: 20121113
  Receipt Date: 20121113
  Transmission Date: 20130627
  Serious: Yes (Other)
  Sender: FDA-Public Use
  Company Number: US-AMGEN-USASP2012009944

PATIENT
  Age: 46 Year
  Sex: Male
  Weight: 147.39 kg

DRUGS (9)
  1. ENBREL [Suspect]
     Indication: RHEUMATOID ARTHRITIS
     Dosage: 50 mg, qwk
     Route: 058
     Dates: start: 20111118, end: 201205
  2. ANDROGEL [Concomitant]
     Dosage: UNK
  3. MELOXICAM [Concomitant]
     Dosage: 7.5 mg, UNK
  4. METFORMIN [Concomitant]
     Dosage: 850 mg, UNK
  5. HYDROXYCHLOROQUINE [Concomitant]
     Dosage: 200 mg, UNK
  6. TAMSULOSIN [Concomitant]
     Dosage: 0.4 mg, UNK
  7. TRIAMTERENE/HCTZ [Concomitant]
     Dosage: UNK
  8. FOLIC ACID [Concomitant]
     Dosage: UNK
  9. ORENCIA [Concomitant]
     Dosage: UNK

REACTIONS (2)
  - Hepatic enzyme increased [Unknown]
  - Drug ineffective [Not Recovered/Not Resolved]
